FAERS Safety Report 19253501 (Version 1)
Quarter: 2021Q2

REPORT INFORMATION
  Report Type: Spontaneous
  Country: US (occurrence: US)
  Receive Date: 20210513
  Receipt Date: 20210513
  Transmission Date: 20210717
  Serious: No
  Sender: FDA-Public Use
  Company Number: US-PFIZER INC-2021205368

PATIENT
  Sex: Male

DRUGS (1)
  1. SUTENT [Suspect]
     Active Substance: SUNITINIB MALATE
     Dosage: 50 MG, DAILY (50 MG DAILY FOR A TOTAL OF 7 DAYS)

REACTIONS (4)
  - Rash [Unknown]
  - Pyrexia [Unknown]
  - Hypoaesthesia [Unknown]
  - Abdominal pain upper [Unknown]
